FAERS Safety Report 15768130 (Version 3)
Quarter: 2019Q1

REPORT INFORMATION
  Report Type: Spontaneous
  Country: US (occurrence: US)
  Receive Date: 20181227
  Receipt Date: 20190205
  Transmission Date: 20190417
  Serious: No
  Sender: FDA-Public Use
  Company Number: US-GLAXOSMITHKLINE-US2018226048

PATIENT
  Sex: Female

DRUGS (1)
  1. ANORO ELLIPTA [Suspect]
     Active Substance: UMECLIDINIUM BROMIDE\VILANTEROL TRIFENATATE
     Indication: CHRONIC OBSTRUCTIVE PULMONARY DISEASE
     Route: 055

REACTIONS (6)
  - Secretion discharge [Not Recovered/Not Resolved]
  - Cough [Not Recovered/Not Resolved]
  - Product complaint [Unknown]
  - Dyspnoea exertional [Unknown]
  - Extra dose administered [Unknown]
  - Underdose [Unknown]

NARRATIVE: CASE EVENT DATE: 2018
